FAERS Safety Report 14581916 (Version 1)
Quarter: 2018Q1

REPORT INFORMATION
  Report Type: Spontaneous
  Country: US (occurrence: US)
  Receive Date: 20180228
  Receipt Date: 20180228
  Transmission Date: 20180509
  Serious: No
  Sender: FDA-Public Use
  Company Number: PHEH2018US008016

PATIENT
  Age: 82 Year
  Sex: Male
  Weight: 65.8 kg

DRUGS (4)
  1. BACTRIM [Concomitant]
     Active Substance: SULFAMETHOXAZOLE\TRIMETHOPRIM
     Indication: PRODUCT USED FOR UNKNOWN INDICATION
     Route: 065
  2. JADENU [Suspect]
     Active Substance: DEFERASIROX
     Dosage: 360 MG, UNK (5 DAYS PER WEEKLY)
     Route: 065
  3. CIPRO [Concomitant]
     Active Substance: CIPROFLOXACIN HYDROCHLORIDE
     Indication: PRODUCT USED FOR UNKNOWN INDICATION
     Route: 065
  4. JADENU [Suspect]
     Active Substance: DEFERASIROX
     Indication: PRODUCT USED FOR UNKNOWN INDICATION
     Dosage: 360 MG, QD
     Route: 065
     Dates: end: 20171230

REACTIONS (8)
  - Dysuria [Unknown]
  - Limb injury [Unknown]
  - Fatigue [Unknown]
  - Pruritus [Recovering/Resolving]
  - Nasopharyngitis [Recovering/Resolving]
  - Palpitations [Unknown]
  - Initial insomnia [Unknown]
  - Vertigo [Unknown]

NARRATIVE: CASE EVENT DATE: 20170207
